FAERS Safety Report 15579594 (Version 2)
Quarter: 2018Q4

REPORT INFORMATION
  Report Type: Report from Study
  Country: IT (occurrence: IT)
  Receive Date: 20181102
  Receipt Date: 20181113
  Transmission Date: 20190205
  Serious: Yes (Death, Hospitalization, Other)
  Sender: FDA-Public Use
  Company Number: PHHY2017IT173505

PATIENT
  Age: 58 Year
  Sex: Male
  Weight: 85 kg

DRUGS (1)
  1. GILENYA [Suspect]
     Active Substance: FINGOLIMOD HYDROCHLORIDE
     Indication: MULTIPLE SCLEROSIS
     Dosage: 0.5 MG, QD
     Route: 048
     Dates: start: 20130627, end: 20170825

REACTIONS (5)
  - Immunodeficiency [Fatal]
  - Pneumonia [Recovered/Resolved with Sequelae]
  - Neurocryptococcosis [Fatal]
  - Candida infection [Recovered/Resolved with Sequelae]
  - Pyrexia [Recovering/Resolving]

NARRATIVE: CASE EVENT DATE: 20170725
